FAERS Safety Report 5361442-3 (Version None)
Quarter: 2007Q2

REPORT INFORMATION
  Report Type: 
  Country: None (occurrence: None)
  Receive Date: 20070530
  Receipt Date: 20070212
  Transmission Date: 20071010
  Serious: No
  Sender: FDA-Public Use
  Company Number: 2007PV029933

PATIENT
  Age: 58 Year
  Sex: Female

DRUGS (10)
  1. BYETTA [Suspect]
     Indication: DIABETES MELLITUS NON-INSULIN-DEPENDENT
     Dosage: 5 MCG;BID;SC; 5 MCG;QPM;SC; 5 MCG;QD;SC
     Route: 058
     Dates: start: 20070101, end: 20070101
  2. BYETTA [Suspect]
     Indication: DIABETES MELLITUS NON-INSULIN-DEPENDENT
     Dosage: 5 MCG;BID;SC; 5 MCG;QPM;SC; 5 MCG;QD;SC
     Route: 058
     Dates: start: 20070116, end: 20070101
  3. BYETTA [Suspect]
     Indication: DIABETES MELLITUS NON-INSULIN-DEPENDENT
     Dosage: 5 MCG;BID;SC; 5 MCG;QPM;SC; 5 MCG;QD;SC
     Route: 058
     Dates: start: 20070101, end: 20070202
  4. BYETTA [Suspect]
     Indication: DIABETES MELLITUS NON-INSULIN-DEPENDENT
     Dosage: 5 MCG;BID;SC; 5 MCG;QPM;SC; 5 MCG;QD;SC
     Route: 058
     Dates: start: 20070101, end: 20070212
  5. BYETTA [Suspect]
     Indication: DIABETES MELLITUS NON-INSULIN-DEPENDENT
     Dosage: 5 MCG;BID;SC; 5 MCG;QPM;SC; 5 MCG;QD;SC
     Route: 058
     Dates: start: 20070203, end: 20070212
  6. MULTIVITAMIN [Concomitant]
  7. METFORMIN HCL [Concomitant]
  8. ACTOS [Concomitant]
  9. DIOVAN [Concomitant]
  10. SYNTHROID [Concomitant]

REACTIONS (6)
  - ABDOMINAL DISCOMFORT [None]
  - BACK PAIN [None]
  - FAECES HARD [None]
  - INFREQUENT BOWEL MOVEMENTS [None]
  - NAUSEA [None]
  - STOMACH DISCOMFORT [None]
